FAERS Safety Report 7680554-2 (Version None)
Quarter: 2011Q3

REPORT INFORMATION
  Report Type: 
  Country: None (occurrence: None)
  Receive Date: 20110812
  Receipt Date: 20110802
  Transmission Date: 20111222
  Serious: Yes (Hospitalization)
  Sender: FDA-Public Use
  Company Number: US-JNJFOC-20110802208

PATIENT
  Sex: Female
  Weight: 50.4 kg

DRUGS (2)
  1. REMICADE [Suspect]
     Indication: ANORECTAL DISORDER
     Route: 042
     Dates: start: 20091103
  2. REMICADE [Suspect]
     Route: 042
     Dates: start: 20091214

REACTIONS (2)
  - DEVICE RELATED SEPSIS [None]
  - CROHN'S DISEASE [None]
